FAERS Safety Report 17500442 (Version 1)
Quarter: 2020Q1

REPORT INFORMATION
  Report Type: Spontaneous
  Country: JP (occurrence: JP)
  Receive Date: 20200305
  Receipt Date: 20200305
  Transmission Date: 20200409
  Serious: Yes (Other)
  Sender: FDA-Public Use
  Company Number: NVSJ2020JP002751

PATIENT
  Age: 89 Year
  Sex: Female

DRUGS (4)
  1. PREDONINE [Concomitant]
     Active Substance: PREDNISOLONE
     Indication: PRODUCT USED FOR UNKNOWN INDICATION
     Dosage: UNK, QD
     Route: 065
  2. MADOPAR [Concomitant]
     Active Substance: BENSERAZIDE HYDROCHLORIDE\LEVODOPA
     Indication: PROPHYLAXIS
     Dosage: HALF A TABLET AND DRINK IN THE MORNING AND EVENING, BID
     Route: 065
  3. NEORAL [Suspect]
     Active Substance: CYCLOSPORINE
     Indication: ANAEMIA
     Dosage: MORNING: 70MG, EVENING: 50MG, BID
     Route: 048
     Dates: start: 201909
  4. NORVASC [Concomitant]
     Active Substance: AMLODIPINE BESYLATE
     Indication: PRODUCT USED FOR UNKNOWN INDICATION
     Route: 065

REACTIONS (7)
  - Arrhythmia [Unknown]
  - Dizziness [Unknown]
  - Visual impairment [Unknown]
  - Product use in unapproved indication [Unknown]
  - Oedema [Unknown]
  - Malaise [Unknown]
  - Physical deconditioning [Unknown]
